FAERS Safety Report 7934475-8 (Version None)
Quarter: 2011Q4

REPORT INFORMATION
  Report Type: 
  Country: None (occurrence: None)
  Receive Date: 20111122
  Receipt Date: 20111115
  Transmission Date: 20120403
  Serious: Yes (Hospitalization)
  Sender: FDA-Public Use
  Company Number: JP-GLAXOSMITHKLINE-B0760605A

PATIENT
  Sex: Male

DRUGS (4)
  1. LAMICTAL [Suspect]
     Indication: EPILEPSY
     Dosage: 75MG PER DAY
     Route: 048
     Dates: start: 20110401
  2. LAMICTAL [Suspect]
     Dosage: 150MG PER DAY
     Route: 048
  3. DEPAKENE [Concomitant]
     Route: 048
  4. LAMICTAL [Suspect]
     Dosage: 225MG PER DAY
     Route: 048

REACTIONS (4)
  - HYPERTHERMIA [None]
  - ERYTHEMA [None]
  - RASH [None]
  - PYREXIA [None]
